FAERS Safety Report 16056584 (Version 7)
Quarter: 2019Q3

REPORT INFORMATION
  Report Type: Spontaneous
  Country: KR (occurrence: KR)
  Receive Date: 20190311
  Receipt Date: 20190726
  Transmission Date: 20191004
  Serious: Yes (Hospitalization, Other)
  Sender: FDA-Public Use
  Company Number: KR-009507513-1903CHN001803

PATIENT
  Sex: Male

DRUGS (125)
  1. KEYTRUDA [Suspect]
     Active Substance: PEMBROLIZUMAB
     Dosage: CONCENTRATION: 100 MG/ VIAL; FREQUENCY: 2; DAYS: 1
     Dates: start: 20190409
  2. KEYTRUDA [Suspect]
     Active Substance: PEMBROLIZUMAB
     Dosage: QUANTITY: 2; DAYS: 1
     Dates: start: 20190619, end: 20190619
  3. EMEND [Concomitant]
     Active Substance: APREPITANT
     Dosage: QUANTITY: 1; DAYS: 1
     Dates: start: 20190430, end: 20190430
  4. GASMOTIN [Concomitant]
     Active Substance: MOSAPRIDE CITRATE
     Dosage: QUANTITY: 1; DAYS: 1
     Dates: start: 20190227
  5. GASMOTIN [Concomitant]
     Active Substance: MOSAPRIDE CITRATE
     Dosage: FREQUENCY: 1; DAYS: 1
     Dates: start: 20190410, end: 20190410
  6. GASMOTIN [Concomitant]
     Active Substance: MOSAPRIDE CITRATE
     Dosage: QUANTITY: 2; DAYS: 1
     Dates: start: 20190528
  7. BC MORPHINE SULFATE [Concomitant]
     Dosage: QUANTITY 2; DAYS 13, STRENGTH: 1 MG/ML
     Dates: start: 20181230, end: 20190207
  8. BC MORPHINE SULFATE [Concomitant]
     Dosage: QUANTITY 1; DAYS 9, STRENGTH: 1 MG/ML
     Dates: start: 20181231, end: 20190206
  9. BC MORPHINE SULFATE [Concomitant]
     Dosage: QUANTITY 3; DAYS 13, STRENGTH: 1 MG/ML
     Dates: start: 20190104, end: 20190127
  10. BC MORPHINE SULFATE [Concomitant]
     Dosage: QUANTITY: 2; DAYS: 1; STRENGTH: 1MG/ML
     Dates: start: 20190226
  11. SODIUM CHLORIDE. [Concomitant]
     Active Substance: SODIUM CHLORIDE
     Dosage: 100 ML; QUANTITY: 3, DAYS: 2
     Dates: start: 20190130, end: 20190205
  12. SODIUM CHLORIDE. [Concomitant]
     Active Substance: SODIUM CHLORIDE
     Dosage: 100 M; QUANTITY: 3; DAYS: 1
     Dates: start: 20190226
  13. SODIUM CHLORIDE. [Concomitant]
     Active Substance: SODIUM CHLORIDE
     Dosage: 1000 ML; QUANTITY: 2; DAYS: 1
     Dates: start: 20190430, end: 20190430
  14. HUMULIN R [Concomitant]
     Active Substance: INSULIN HUMAN
     Dosage: QUANTITY 0.008; DAYS 18
     Dates: start: 20190101, end: 20190207
  15. HUMULIN R [Concomitant]
     Active Substance: INSULIN HUMAN
     Dosage: QUANTITY 0.012; DAYS 7
     Dates: start: 20190103, end: 20190205
  16. HUMULIN R [Concomitant]
     Active Substance: INSULIN HUMAN
     Dosage: QUANTITY 0.016; DAYS 11
     Dates: start: 20190108, end: 20190206
  17. HUMULIN R [Concomitant]
     Active Substance: INSULIN HUMAN
     Dosage: QUANTITY: 0.008; DAYS: 2
     Dates: start: 20190318, end: 20190319
  18. HUMULIN R [Concomitant]
     Active Substance: INSULIN HUMAN
     Dosage: QUANTITY: 0.006; DAYS: 2
     Dates: start: 20190318, end: 20190320
  19. HUMULIN R [Concomitant]
     Active Substance: INSULIN HUMAN
     Dosage: QUANTITY: 0.006; DAYS: 1
     Dates: start: 20190319, end: 20190319
  20. KEYTRUDA [Suspect]
     Active Substance: PEMBROLIZUMAB
     Dosage: QUANTITY 2; DAYS 1
     Dates: start: 20190319
  21. KEYTRUDA [Suspect]
     Active Substance: PEMBROLIZUMAB
     Dosage: QUANTITY: 2; DAYS: 1
     Dates: start: 20190716
  22. EMEND [Concomitant]
     Active Substance: APREPITANT
     Dosage: QUANTITY: 1; DAYS: 1
     Route: 048
     Dates: start: 20190319, end: 20190320
  23. DEXAMETHASONE DISODIUM PHOSPHATE [Concomitant]
     Active Substance: DEXAMETHASONE SODIUM PHOSPHATE
     Dosage: QUANTITY: 1; DAYS: 2
     Dates: start: 20190226, end: 20190227
  24. LASIX [Concomitant]
     Active Substance: FUROSEMIDE
     Dosage: QUANTITY: 2; DAYS: 1
     Dates: start: 20190430, end: 20190430
  25. BC MORPHINE SULFATE [Concomitant]
     Dosage: QUANTITY: 1; DAYS: 2; STRENGTH: 1MG/ML
     Dates: start: 20190225, end: 20190227
  26. SODIUM CHLORIDE. [Concomitant]
     Active Substance: SODIUM CHLORIDE
     Dosage: 20 ML; QUANTITY: 2, DAYS: 2
     Dates: start: 20190226, end: 20190227
  27. SODIUM CHLORIDE. [Concomitant]
     Active Substance: SODIUM CHLORIDE
     Dosage: 10 ML; QUANTITY: 1; DAYS: 1
     Dates: start: 20190226
  28. SODIUM CHLORIDE. [Concomitant]
     Active Substance: SODIUM CHLORIDE
     Dosage: 150 ML; QUANTITY: 1; DAYS: 1
     Dates: start: 20190226
  29. SODIUM CHLORIDE. [Concomitant]
     Active Substance: SODIUM CHLORIDE
     Dosage: 1000 ML; QUANTITY: 2; DAYS: 1
     Dates: start: 20190319, end: 20190319
  30. SODIUM CHLORIDE. [Concomitant]
     Active Substance: SODIUM CHLORIDE
     Dosage: 150 ML; QUANTITY: 1; DAYS: 1
     Dates: start: 20190430, end: 20190430
  31. SODIUM CHLORIDE. [Concomitant]
     Active Substance: SODIUM CHLORIDE
     Dosage: UNK
     Dates: start: 20190528
  32. HUMULIN R [Concomitant]
     Active Substance: INSULIN HUMAN
     Dosage: QUANTITY 0.004; DAYS 11
     Dates: start: 20190104, end: 20190203
  33. HUMULIN R [Concomitant]
     Active Substance: INSULIN HUMAN
     Dosage: QUANTITY: 0.004; DAYS: 1
     Dates: start: 20190430, end: 20190430
  34. ATIVAN [Concomitant]
     Active Substance: LORAZEPAM
     Dosage: QUANTITY: 1; DAYS: 1
     Dates: start: 20190226
  35. DUPHALAC [Concomitant]
     Active Substance: LACTULOSE
     Dosage: QUANTITY: 1; DAYS: 2
     Dates: start: 20190528, end: 20190529
  36. EMEND [Concomitant]
     Active Substance: APREPITANT
     Dosage: FREQUENCY: 1; DAYS: 1
     Route: 048
     Dates: start: 20190409, end: 20190409
  37. FOLIC ACID. [Concomitant]
     Active Substance: FOLIC ACID
     Dosage: FREQUENCY: 1; DAYS: 23
     Dates: start: 20190409, end: 20190410
  38. FOLIC ACID. [Concomitant]
     Active Substance: FOLIC ACID
     Dosage: QUANTITY: 1; DAYS: 23
     Dates: start: 20190430, end: 20190502
  39. FOLIC ACID. [Concomitant]
     Active Substance: FOLIC ACID
     Dosage: 1MG, QUANTITY: 1; DAYS: 3
     Dates: start: 20190618, end: 20190620
  40. FOLIC ACID. [Concomitant]
     Active Substance: FOLIC ACID
     Dosage: 1MG, QUANTITY: 1; DAYS: 23
     Dates: start: 20190716, end: 20190717
  41. GASMOTIN [Concomitant]
     Active Substance: MOSAPRIDE CITRATE
     Dosage: QUANTITY: 2; DAYS: 1
     Dates: start: 20190225
  42. GASMOTIN [Concomitant]
     Active Substance: MOSAPRIDE CITRATE
     Dosage: QUANTITY: 1; DAYS: 2
     Dates: start: 20190527, end: 20190529
  43. SODIUM CHLORIDE. [Concomitant]
     Active Substance: SODIUM CHLORIDE
     Dosage: 20 ML, QUANTITY 6; DAYS: 1
     Dates: start: 20190205
  44. SODIUM CHLORIDE. [Concomitant]
     Active Substance: SODIUM CHLORIDE
     Dosage: 10 MILLILITER; QUANTITY: 1, DAYS: 1
     Dates: start: 20190130
  45. SODIUM CHLORIDE. [Concomitant]
     Active Substance: SODIUM CHLORIDE
     Dosage: 1000 MILLILITER; QUANTITY 2; DAYS 2
     Dates: start: 20190107, end: 20190130
  46. PENIRAMIN [Concomitant]
     Dosage: QUANTITY: 1; DAYS: 1
     Dates: start: 20190430, end: 20190430
  47. KEYTRUDA [Suspect]
     Active Substance: PEMBROLIZUMAB
     Dosage: QUANTITY 2; DAYS 1
     Dates: start: 20190226
  48. KEYTRUDA [Suspect]
     Active Substance: PEMBROLIZUMAB
     Dosage: QUANTITY: 2; DAYS: 1
     Dates: start: 20190430, end: 20190430
  49. DUPHALAC [Concomitant]
     Active Substance: LACTULOSE
     Dosage: QUANTITY 1; DAYS 15
     Dates: start: 20190118, end: 20190208
  50. FOLIC ACID. [Concomitant]
     Active Substance: FOLIC ACID
     Dosage: UNK
     Dates: start: 20190528, end: 20190529
  51. GASMOTIN [Concomitant]
     Active Substance: MOSAPRIDE CITRATE
     Dosage: QUANTITY: 3; DAYS: 15
     Dates: start: 20190226, end: 20190227
  52. BC MORPHINE SULFATE [Concomitant]
     Dosage: QUANTITY 4; DAYS 2, STRENGTH: 1 MG/ML
     Dates: start: 20190117, end: 20190124
  53. SODIUM CHLORIDE. [Concomitant]
     Active Substance: SODIUM CHLORIDE
     Dosage: 100 ML; QUANTITY: 3; DAYS: 1
     Dates: start: 20190319, end: 20190319
  54. SODIUM CHLORIDE. [Concomitant]
     Active Substance: SODIUM CHLORIDE
     Dosage: 1000 ML; QUANTITY: 1; DAYS: 1
     Dates: start: 20190318, end: 20190318
  55. SODIUM CHLORIDE. [Concomitant]
     Active Substance: SODIUM CHLORIDE
     Dosage: 50 ML; QUANTITY: 1; DOSE: 1
     Dates: start: 20190319, end: 20190319
  56. SODIUM CHLORIDE. [Concomitant]
     Active Substance: SODIUM CHLORIDE
     Dosage: 1000 MILLILITER; QUANTITY: 1, DAYS: 2
     Dates: start: 20190102, end: 20190129
  57. PENIRAMIN [Concomitant]
     Dosage: QUANTITY 3; DAYS 1
     Dates: start: 20190205
  58. PENIRAMIN [Concomitant]
     Dosage: QUANTITY: 1; DAYS: 1
     Dates: start: 20190716
  59. FRUCTOSE (+) SODIUM CHLORIDE [Concomitant]
     Dosage: 500 ML; QUANTITY: 2; DAYS: 1
     Dates: start: 20190320, end: 20190320
  60. FRUCTOSE (+) SODIUM CHLORIDE [Concomitant]
     Dosage: 500 ML, QUANTITY 1, DAYS 2
     Dates: start: 20190527, end: 20190528
  61. HUMULIN R [Concomitant]
     Active Substance: INSULIN HUMAN
     Dosage: QUANTITY 0.002; DAYS 13
     Dates: start: 20190110, end: 20190204
  62. HUMULIN R [Concomitant]
     Active Substance: INSULIN HUMAN
     Dosage: QUANTITY: 0.006; DAYS: 1
     Dates: start: 20190226
  63. DIAMICRON [Concomitant]
     Active Substance: GLICLAZIDE
     Dosage: QUANTITY 2; DAYS 44
     Dates: start: 20190110, end: 20190208
  64. DUPHALAC [Concomitant]
     Active Substance: LACTULOSE
     Dosage: QUANTITY: 1, DAYS: 16
     Dates: start: 20190226, end: 20190227
  65. DUPHALAC [Concomitant]
     Active Substance: LACTULOSE
     Dosage: FREQUENCY: 1; DAYS: 14
     Dates: start: 20190410, end: 20190410
  66. DUPHALAC [Concomitant]
     Active Substance: LACTULOSE
     Dosage: QUANTITY: 1; DAYS: 20
     Dates: start: 20190502
  67. EMEND [Concomitant]
     Active Substance: APREPITANT
     Dosage: QUANTITY 1; DAYS 1
     Route: 048
     Dates: start: 20190130
  68. GASMOTIN [Concomitant]
     Active Substance: MOSAPRIDE CITRATE
     Dosage: QUANTITY: 2; DAYS: 1
     Dates: start: 20190318, end: 20190318
  69. GASMOTIN [Concomitant]
     Active Substance: MOSAPRIDE CITRATE
     Dosage: QUANTITY: 3; DAYS: 25
     Dates: start: 20190319, end: 20190321
  70. DEXAMETHASONE DISODIUM PHOSPHATE [Concomitant]
     Active Substance: DEXAMETHASONE SODIUM PHOSPHATE
     Dosage: QUANTITY 1; DAYS 3
     Dates: start: 20190130, end: 20190201
  71. LASIX [Concomitant]
     Active Substance: FUROSEMIDE
     Dosage: QUANTITY 1; DAYS 2
     Dates: start: 20190131, end: 20190203
  72. SODIUM CHLORIDE. [Concomitant]
     Active Substance: SODIUM CHLORIDE
     Dosage: 10 ML; QUANTITY: 1; DAYS: 1
     Dates: start: 20190319, end: 20190319
  73. FRUCTOSE (+) SODIUM CHLORIDE [Concomitant]
     Dosage: 500 MILLILITER; QUANTITY 1; DAYS 28
     Dates: start: 20190110, end: 20190207
  74. ATIVAN [Concomitant]
     Active Substance: LORAZEPAM
     Dosage: QUANTITY 1; DAYS 1
     Dates: start: 20190130
  75. KEYTRUDA [Suspect]
     Active Substance: PEMBROLIZUMAB
     Dosage: QUANTITY: 2; DAYS: 1
     Dates: start: 20190528
  76. PEMETREXED DISODIUM [Concomitant]
     Active Substance: PEMETREXED DISODIUM
     Indication: LUNG ADENOCARCINOMA
     Dosage: UNK
     Dates: start: 20190130
  77. EMEND [Concomitant]
     Active Substance: APREPITANT
     Dosage: QUANTITY: 1; DAYS: 1
     Route: 048
     Dates: start: 20190226
  78. GASMOTIN [Concomitant]
     Active Substance: MOSAPRIDE CITRATE
     Dosage: FREQUENCY: 2; DAYS: 1
     Dates: start: 20190408, end: 20190408
  79. GASMOTIN [Concomitant]
     Active Substance: MOSAPRIDE CITRATE
     Dosage: QUANTITY: 3; DAYS: 22
     Dates: start: 20190430, end: 20190502
  80. SODIUM CHLORIDE. [Concomitant]
     Active Substance: SODIUM CHLORIDE
     Dosage: 150 ML; QUANTITY: 1; DAYS: 1
     Dates: start: 20190130
  81. SODIUM CHLORIDE. [Concomitant]
     Active Substance: SODIUM CHLORIDE
     Dosage: 50 ML; QUANTITY: 1; DAYS: 1
     Dates: start: 20190130
  82. SODIUM CHLORIDE. [Concomitant]
     Active Substance: SODIUM CHLORIDE
     Dosage: 100 ML; QUANTITY: 3; DAYS: 1
     Dates: start: 20190430, end: 20190430
  83. SODIUM CHLORIDE. [Concomitant]
     Active Substance: SODIUM CHLORIDE
     Dosage: 50 ML; QUANTITY: 1; DAYS: 1
     Dates: start: 20190430, end: 20190430
  84. SODIUM CHLORIDE. [Concomitant]
     Active Substance: SODIUM CHLORIDE
     Dosage: 1000 MILLILITER; QUANTITY: 1, DAYS: 1
     Dates: start: 20190225
  85. SODIUM CHLORIDE. [Concomitant]
     Active Substance: SODIUM CHLORIDE
     Dosage: 1000 ML; QUANTITY: 2; DAYS: 1
     Dates: start: 20190226
  86. FRUCTOSE (+) SODIUM CHLORIDE [Concomitant]
     Dosage: 500 ML; QUANTITY: 3; DAYS: 1
     Dates: start: 20190319, end: 20190319
  87. FRUCTOSE (+) SODIUM CHLORIDE [Concomitant]
     Dosage: 500 ML, QUANTITY: 1; DAYS: 1
     Dates: start: 20190429, end: 20190429
  88. FRUCTOSE (+) SODIUM CHLORIDE [Concomitant]
     Dosage: 500 ML, QUANTITY: 3; DAYS: 1
     Dates: start: 20190430, end: 20190430
  89. HUMULIN R [Concomitant]
     Active Substance: INSULIN HUMAN
     Dosage: QUANTITY: 0.004; DAYS: 2
     Dates: start: 20190225, end: 20190227
  90. HUMULIN R [Concomitant]
     Active Substance: INSULIN HUMAN
     Dosage: QUANTITY: 0.008; DAYS: 1
     Dates: start: 20190226
  91. HUMULIN R [Concomitant]
     Active Substance: INSULIN HUMAN
     Dosage: QUANTITY: 0.002; DAYS: 1
     Dates: start: 20190320, end: 20190320
  92. CISPLATIN. [Concomitant]
     Active Substance: CISPLATIN
     Indication: LUNG ADENOCARCINOMA
     Dosage: UNK
     Dates: start: 20190130
  93. DIAMICRON [Concomitant]
     Active Substance: GLICLAZIDE
     Dosage: QUANTITY: 2, DAYS: 16
     Dates: start: 20190226, end: 20190227
  94. DUPHALAC [Concomitant]
     Active Substance: LACTULOSE
     Dosage: QUANTITY 2; DAYS 2
     Dates: start: 20190129, end: 20190202
  95. DUPHALAC [Concomitant]
     Active Substance: LACTULOSE
     Dosage: QUANTITY: 1; DAYS: 18
     Dates: start: 20190319, end: 20190321
  96. GASMOTIN [Concomitant]
     Active Substance: MOSAPRIDE CITRATE
     Dosage: QUANTITY: 1; DAYS: 1
     Dates: start: 20190321, end: 20190321
  97. GASMOTIN [Concomitant]
     Active Substance: MOSAPRIDE CITRATE
     Dosage: FREQUENCY: 3; DAYS: 22
     Dates: start: 20190409, end: 20190410
  98. LASIX [Concomitant]
     Active Substance: FUROSEMIDE
     Dosage: QUANTITY: 2; DAYS: 1
     Dates: start: 20190226
  99. SODIUM CHLORIDE. [Concomitant]
     Active Substance: SODIUM CHLORIDE
     Dosage: 10 ML, QUANTITY 1, DAYS 1
     Dates: start: 20190528
  100. PENIRAMIN [Concomitant]
     Dosage: QUANTITY 1; DAYS 1
     Dates: start: 20190130
  101. FRUCTOSE (+) SODIUM CHLORIDE [Concomitant]
     Dosage: 500 MILLILITER; QUANTITY 3; DAYS 1
     Dates: start: 20190205
  102. FRUCTOSE (+) SODIUM CHLORIDE [Concomitant]
     Dosage: 500 ML; QUANTITY: 1; DAYS: 2
     Dates: start: 20190226, end: 20190227
  103. HUMULIN R [Concomitant]
     Active Substance: INSULIN HUMAN
     Dosage: QUANTITY 0.018; DAYS 2
     Dates: start: 20190116, end: 20190207
  104. HUMULIN R [Concomitant]
     Active Substance: INSULIN HUMAN
     Dosage: QUANTITY: 0.016; DAYS: 1
     Dates: start: 20190320, end: 20190320
  105. HUMULIN R [Concomitant]
     Active Substance: INSULIN HUMAN
     Dosage: QUANTITY: 0.006; DAYS: 1
     Dates: start: 20190429, end: 20190429
  106. HUMULIN R [Concomitant]
     Active Substance: INSULIN HUMAN
     Dosage: QUANTITY: 0.002; DAYS: 1
     Dates: start: 20190501, end: 20190501
  107. ATIVAN [Concomitant]
     Active Substance: LORAZEPAM
     Dosage: QUANTITY: 1; DAYS: 1
     Dates: start: 20190430, end: 20190430
  108. KEYTRUDA [Suspect]
     Active Substance: PEMBROLIZUMAB
     Indication: LUNG ADENOCARCINOMA
     Dosage: QUANTITY 2; DAYS 1
     Dates: start: 20190130
  109. FOLIC ACID. [Concomitant]
     Active Substance: FOLIC ACID
     Dosage: QUANTITY 1; DAYS 3
     Dates: start: 20190129, end: 20190131
  110. FOLIC ACID. [Concomitant]
     Active Substance: FOLIC ACID
     Dosage: QUANTITY: 1; DAYS: 17
     Dates: start: 20190225, end: 20190227
  111. FOLIC ACID. [Concomitant]
     Active Substance: FOLIC ACID
     Dosage: QUANTITY: 1; DAYS: 26
     Dates: start: 20190319, end: 20190321
  112. GASMOTIN [Concomitant]
     Active Substance: MOSAPRIDE CITRATE
     Dosage: QUANTITY 3; DAYS 23
     Dates: start: 20190129, end: 20190208
  113. GASMOTIN [Concomitant]
     Active Substance: MOSAPRIDE CITRATE
     Dosage: QUANTITY: 1; DAYS: 2
     Dates: start: 20190429, end: 20190502
  114. LASIX [Concomitant]
     Active Substance: FUROSEMIDE
     Dosage: QUANTITY 2; DAYS 1
     Dates: start: 20190130
  115. SODIUM CHLORIDE. [Concomitant]
     Active Substance: SODIUM CHLORIDE
     Dosage: 20 ML;  QUANTITY: 2, DAYS: 29
     Dates: start: 20181231, end: 20190207
  116. SODIUM CHLORIDE. [Concomitant]
     Active Substance: SODIUM CHLORIDE
     Dosage: 100 ML; QUANTITY: 1, DAYS: 3
     Dates: start: 20190202, end: 20190204
  117. SODIUM CHLORIDE. [Concomitant]
     Active Substance: SODIUM CHLORIDE
     Dosage: 50 ML, UNK; QUANTITY: 1; DAYS: 1
     Dates: start: 20190226
  118. SODIUM CHLORIDE. [Concomitant]
     Active Substance: SODIUM CHLORIDE
     Dosage: 150 ML; QUANTITY: 1; DAYS: 1
     Dates: start: 20190319, end: 20190319
  119. SODIUM CHLORIDE. [Concomitant]
     Active Substance: SODIUM CHLORIDE
     Dosage: 10 ML; QUANTITY: 1; DAYS: 1
     Dates: start: 20190430, end: 20190430
  120. SODIUM CHLORIDE. [Concomitant]
     Active Substance: SODIUM CHLORIDE
     Dosage: 100 ML, QUANTITY 3, DAYS 1
     Dates: start: 20190528
  121. PENIRAMIN [Concomitant]
     Dosage: QUANTITY: 1; DAYS: 1
     Dates: start: 20190226
  122. PENIRAMIN [Concomitant]
     Dosage: 4MG/2ML/A, QUANTITY: 1; DAYS: 1
     Dates: start: 20190619, end: 20190619
  123. HUMULIN R [Concomitant]
     Active Substance: INSULIN HUMAN
     Dosage: QUANTITY 0.006; DAYS 14
     Dates: start: 20190106, end: 20190208
  124. HUMULIN R [Concomitant]
     Active Substance: INSULIN HUMAN
     Dosage: QUANTITY: 0.008; DAYS: 1
     Dates: start: 20190501, end: 20190501
  125. HUMULIN R [Concomitant]
     Active Substance: INSULIN HUMAN
     Dosage: QUANTITY: 0.004; DAYS: 1
     Dates: start: 20190618, end: 20190618

REACTIONS (7)
  - Adverse event [Unknown]
  - Adverse event [Unknown]
  - Adverse event [Unknown]
  - Adverse event [Unknown]
  - Adverse event [Unknown]
  - Oxygen therapy [Unknown]
  - Oxygen therapy [Unknown]

NARRATIVE: CASE EVENT DATE: 2019
